FAERS Safety Report 5988827-6 (Version None)
Quarter: 2008Q4

REPORT INFORMATION
  Report Type: 
  Country: None (occurrence: None)
  Receive Date: 20081208
  Receipt Date: 20081208
  Transmission Date: 20090506
  Serious: Yes (Life-Threatening, Hospitalization)
  Sender: FDA-Public Use
  Company Number: None

PATIENT
  Age: 45 Year
  Sex: Female
  Weight: 68.0396 kg

DRUGS (1)
  1. CHANTIX [Suspect]
     Dosage: 1 TAB DAILY

REACTIONS (4)
  - BORDERLINE PERSONALITY DISORDER [None]
  - COMA [None]
  - STRESS [None]
  - SUICIDE ATTEMPT [None]
